FAERS Safety Report 8789089 (Version 2)
Quarter: 2012Q4

REPORT INFORMATION
  Report Type: 
  Country: US (occurrence: US)
  Receive Date: 20120917
  Receipt Date: 20120928
  Transmission Date: 20130627
  Serious: Yes (Disabling)
  Sender: FDA-Public Use
  Company Number: US-009507513-1209USA004391

PATIENT
  Sex: Female

DRUGS (2)
  1. SINGULAIR [Suspect]
     Indication: COUGH
     Dosage: 10 mg, qd
     Route: 048
     Dates: start: 201207, end: 201208
  2. SINGULAIR [Suspect]
     Indication: BRONCHIAL HYPERREACTIVITY

REACTIONS (2)
  - Burning sensation [Not Recovered/Not Resolved]
  - Paraesthesia [Not Recovered/Not Resolved]
